FAERS Safety Report 10680618 (Version 1)
Quarter: 2014Q4

REPORT INFORMATION
  Report Type: Spontaneous
  Country: US (occurrence: US)
  Receive Date: 20141229
  Receipt Date: 20141229
  Transmission Date: 20150529
  Serious: No
  Sender: FDA-Public Use
  Company Number: US-SA-2014SA099707

PATIENT
  Age: 82 Year
  Sex: Female
  Weight: 68.9 kg

DRUGS (9)
  1. METOPROLOL [Concomitant]
     Active Substance: METOPROLOL
  2. ROSUVASTATIN [Concomitant]
     Active Substance: ROSUVASTATIN
  3. LISINOPRIL. [Concomitant]
     Active Substance: LISINOPRIL
  4. FUROSEMIDE. [Concomitant]
     Active Substance: FUROSEMIDE
  5. ISOSORBIDE DINITRATE. [Concomitant]
     Active Substance: ISOSORBIDE DINITRATE
  6. FAMOTIDINE. [Concomitant]
     Active Substance: FAMOTIDINE
  7. PLAVIX [Suspect]
     Active Substance: CLOPIDOGREL BISULFATE
     Indication: PRODUCT USED FOR UNKNOWN INDICATION
     Route: 065
     Dates: start: 2012
  8. QUETIAPINE [Concomitant]
     Active Substance: QUETIAPINE
  9. LEVOTHYROXINE [Concomitant]
     Active Substance: LEVOTHYROXINE

REACTIONS (5)
  - Confusional state [Unknown]
  - Hallucination [Unknown]
  - Thought blocking [Unknown]
  - Feeling abnormal [Unknown]
  - Asocial behaviour [Unknown]

NARRATIVE: CASE EVENT DATE: 201406
